FAERS Safety Report 21128469 (Version 2)
Quarter: 2022Q3

REPORT INFORMATION
  Report Type: Spontaneous
  Country: PT (occurrence: PT)
  Receive Date: 20220725
  Receipt Date: 20220822
  Transmission Date: 20221027
  Serious: Yes (Hospitalization, Other)
  Sender: FDA-Public Use
  Company Number: PT-ELI_LILLY_AND_COMPANY-PT202207005343

PATIENT
  Age: 81 Year
  Sex: Male

DRUGS (4)
  1. HUMALOG MIX75/25 [Suspect]
     Active Substance: INSULIN LISPRO
     Indication: Diabetes mellitus
     Dosage: 14 U, EACH MORNING
     Route: 065
  2. HUMALOG MIX75/25 [Suspect]
     Active Substance: INSULIN LISPRO
     Dosage: 12 U, DAILY (AT LUNCH)
     Route: 065
  3. HUMALOG MIX75/25 [Suspect]
     Active Substance: INSULIN LISPRO
     Dosage: 10 U, DAILY (AT NIGHT)
     Route: 065
  4. BETAHISTINE [Concomitant]
     Active Substance: BETAHISTINE
     Indication: Tinnitus
     Dosage: UNK UNK, BID

REACTIONS (5)
  - Prostatic disorder [Recovered/Resolved]
  - Coronary artery occlusion [Recovered/Resolved]
  - Cardiac valve disease [Recovered/Resolved]
  - Diabetes mellitus inadequate control [Unknown]
  - Fatigue [Unknown]
